FAERS Safety Report 8395557-2 (Version None)
Quarter: 2012Q2

REPORT INFORMATION
  Report Type: 
  Country: None (occurrence: None)
  Receive Date: 20120530
  Receipt Date: 20110803
  Transmission Date: 20120825
  Serious: No
  Sender: FDA-Public Use
  Company Number: US-GLAXOSMITHKLINE-A0939541A

PATIENT
  Age: 50 Year
  Sex: Male

DRUGS (4)
  1. VENTOLIN [Suspect]
     Indication: BRONCHITIS
     Dates: start: 20110726, end: 20110729
  2. AMBIEN [Concomitant]
  3. IBUPROFEN [Concomitant]
  4. ZITHROMAX [Concomitant]
     Indication: RESPIRATORY TRACT CONGESTION

REACTIONS (1)
  - COUGH [None]
